FAERS Safety Report 6536837-2 (Version None)
Quarter: 2010Q1

REPORT INFORMATION
  Report Type: 
  Country: None (occurrence: None)
  Receive Date: 20100107
  Receipt Date: 20091222
  Transmission Date: 20100710
  Serious: Yes (Other)
  Sender: FDA-Public Use
  Company Number: URSO-2009-156

PATIENT
  Age: 20 Year
  Sex: Female

DRUGS (1)
  1. URSODIOL [Suspect]
     Indication: CHOLESTASIS

REACTIONS (6)
  - CAESAREAN SECTION [None]
  - CHORIOAMNIONITIS [None]
  - DRUG EXPOSURE DURING PREGNANCY [None]
  - FUNISITIS [None]
  - HEART RATE INCREASED [None]
  - PREMATURE LABOUR [None]
